FAERS Safety Report 8544314-2 (Version None)
Quarter: 2012Q3

REPORT INFORMATION
  Report Type: 
  Country: None (occurrence: None)
  Receive Date: 20120727
  Receipt Date: 20120724
  Transmission Date: 20120928
  Serious: No
  Sender: FDA-Public Use
  Company Number: US-PFIZER INC-2012142929

PATIENT
  Sex: Female
  Weight: 65 kg

DRUGS (4)
  1. ARTHROTEC [Suspect]
     Dosage: 75 MG, 2X/DAY
     Route: 048
  2. ARTHROTEC [Suspect]
     Indication: ARTHRITIS
     Dosage: 50 MG, 2X/DAY
     Route: 048
  3. WELLBUTRIN [Concomitant]
     Dosage: UNK, 1X/DAY
     Route: 048
  4. ATENOLOL [Concomitant]
     Dosage: UNK, 1X/DAY
     Route: 048

REACTIONS (1)
  - DRUG INEFFECTIVE [None]
